FAERS Safety Report 14033925 (Version 2)
Quarter: 2019Q1

REPORT INFORMATION
  Report Type: Report from Study
  Country: JP (occurrence: JP)
  Receive Date: 20171003
  Receipt Date: 20190307
  Transmission Date: 20190417
  Serious: Yes (Other)
  Sender: FDA-Public Use
  Company Number: JP-INCYTE CORPORATION-2017IN008222

PATIENT

DRUGS (3)
  1. JAKAVI [Suspect]
     Active Substance: RUXOLITINIB
     Indication: MYELOFIBROSIS
     Dosage: 15 MG, BID
     Route: 048
     Dates: start: 20160513, end: 20170109
  2. IRRADIATED RED CELLS CONCENTRATES-LEUKOCYTES [Concomitant]
     Indication: MYELOFIBROSIS
     Dosage: 400 ML, UNK
     Route: 065
     Dates: start: 20160513
  3. JAKAVI [Suspect]
     Active Substance: RUXOLITINIB
     Dosage: 5 MG, BID
     Route: 048
     Dates: start: 20170224

REACTIONS (4)
  - Anaemia [Recovering/Resolving]
  - Cryptococcosis [Recovering/Resolving]
  - Concomitant disease progression [Recovering/Resolving]
  - Malaise [Unknown]

NARRATIVE: CASE EVENT DATE: 20160614
